FAERS Safety Report 16026042 (Version 4)
Quarter: 2019Q2

REPORT INFORMATION
  Report Type: Spontaneous
  Country: DE (occurrence: DE)
  Receive Date: 20190302
  Receipt Date: 20190601
  Transmission Date: 20190711
  Serious: Yes (Other)
  Sender: FDA-Public Use
  Company Number: DE-AUROBINDO-AUR-APL-2019-011137

PATIENT

DRUGS (9)
  1. DUROGESIC [Suspect]
     Active Substance: FENTANYL
     Indication: KNEE OPERATION
     Dosage: 100 MICROGRAM
     Route: 062
     Dates: start: 2009
  2. NITRAZEPAM [Suspect]
     Active Substance: NITRAZEPAM
     Indication: INSOMNIA
     Dosage: 0.5 DOSAGE FORM
     Route: 048
  3. OMEPRAZOLE. [Concomitant]
     Active Substance: OMEPRAZOLE
     Indication: GASTRIC PH DECREASED
     Dosage: UNK, 1, 3 DAY, EVERY THREE DAYS 1 TABLET
     Route: 048
  4. RAMIPRIL TABLET [Suspect]
     Active Substance: RAMIPRIL
     Indication: HYPERTENSION
     Dosage: UNK
     Route: 048
  5. ASPIRIN. [Concomitant]
     Active Substance: ASPIRIN
     Indication: PRODUCT USED FOR UNKNOWN INDICATION
     Dosage: UNK, 1
     Route: 048
  6. TAMSULOSIN [Suspect]
     Active Substance: TAMSULOSIN
     Indication: BENIGN PROSTATIC HYPERPLASIA
     Dosage: UNK
     Route: 048
  7. SEEBRI BREEZHALER [Concomitant]
     Active Substance: GLYCOPYRROLATE
     Indication: BRONCHITIS
     Dosage: UNK
     Route: 055
  8. MAGNESIUM [Concomitant]
     Active Substance: MAGNESIUM
     Indication: PRODUCT USED FOR UNKNOWN INDICATION
     Dosage: UNK, 2
     Route: 048
  9. NOVAMINSULFON [Concomitant]
     Active Substance: METAMIZOLE
     Indication: PAIN
     Dosage: UNK, 2
     Route: 048

REACTIONS (5)
  - Feeling cold [Unknown]
  - Drug dependence [Unknown]
  - Fatigue [Unknown]
  - Memory impairment [Unknown]
  - Dyspnoea [Unknown]
